FAERS Safety Report 4480920-2 (Version None)
Quarter: 2004Q4

REPORT INFORMATION
  Report Type: 
  Country: None (occurrence: None)
  Receive Date: 20041020
  Receipt Date: 20041020
  Transmission Date: 20050328
  Serious: Yes (Other)
  Sender: FDA-Public Use
  Company Number: None

PATIENT
  Age: 54 Year
  Sex: Male

DRUGS (2)
  1. FLORINEF [Suspect]
     Indication: BLOOD PRESSURE
     Dosage: QD
     Dates: start: 20030801
  2. FLORINEF [Suspect]
     Indication: QUADRIPLEGIA
     Dosage: QD
     Dates: start: 20030801

REACTIONS (2)
  - PHARMACEUTICAL PRODUCT COMPLAINT [None]
  - RASH [None]
